FAERS Safety Report 12612300 (Version 4)
Quarter: 2016Q4

REPORT INFORMATION
  Report Type: Report from Study
  Country: BR (occurrence: BR)
  Receive Date: 20160801
  Receipt Date: 20161214
  Transmission Date: 20170207
  Serious: Yes (Hospitalization, Other)
  Sender: FDA-Public Use
  Company Number: PHHY2016BR092434

PATIENT
  Sex: Female
  Weight: 72 kg

DRUGS (2)
  1. EXJADE [Suspect]
     Active Substance: DEFERASIROX
     Dosage: 1000 MG (15 MG/KG), QD
     Route: 048
     Dates: start: 20160413
  2. EXJADE [Suspect]
     Active Substance: DEFERASIROX
     Indication: ACUTE LYMPHOCYTIC LEUKAEMIA
     Dosage: 2 DF, UNK
     Route: 048
     Dates: start: 201603

REACTIONS (19)
  - Cataract [Unknown]
  - Serum ferritin increased [Not Recovered/Not Resolved]
  - Vision blurred [Unknown]
  - Malaise [Unknown]
  - Pain [Unknown]
  - Hypoaesthesia [Unknown]
  - Weight abnormal [Unknown]
  - Abasia [Unknown]
  - Headache [Unknown]
  - Spinal pain [Unknown]
  - Swelling [Recovering/Resolving]
  - Vein disorder [Unknown]
  - Pain in extremity [Recovering/Resolving]
  - Bursitis [Unknown]
  - Fatigue [Unknown]
  - Osteonecrosis [Unknown]
  - Gait disturbance [Unknown]
  - Femur fracture [Unknown]
  - Nervousness [Unknown]
